FAERS Safety Report 10679989 (Version 1)
Quarter: 2014Q4

REPORT INFORMATION
  Report Type: Report from Study
  Country: NL (occurrence: NL)
  Receive Date: 20141229
  Receipt Date: 20141229
  Transmission Date: 20150529
  Serious: Yes (Death, Hospitalization)
  Sender: FDA-Public Use
  Company Number: US-ASTRAZENECA-2014SE98122

PATIENT
  Age: 550 Day
  Sex: Female

DRUGS (1)
  1. SYNAGIS [Suspect]
     Active Substance: PALIVIZUMAB
     Indication: PREMATURE BABY
     Dosage: 15 MG/KG MONTHLY, BODY WEIGHT
     Route: 030
     Dates: start: 20140923, end: 20141217

REACTIONS (1)
  - Death [Fatal]

NARRATIVE: CASE EVENT DATE: 20141217
